FAERS Safety Report 5333934-4 (Version None)
Quarter: 2007Q2

REPORT INFORMATION
  Report Type: 
  Country: None (occurrence: None)
  Receive Date: 20070524
  Receipt Date: 20070517
  Transmission Date: 20071010
  Serious: Yes (Hospitalization, Other)
  Sender: FDA-Public Use
  Company Number: US-PFIZER INC-2007017515

PATIENT
  Sex: Female
  Weight: 108 kg

DRUGS (2)
  1. CELEBREX [Suspect]
     Indication: PAIN
     Route: 048
  2. THEOPHYLLINE [Concomitant]

REACTIONS (6)
  - BLINDNESS TRANSIENT [None]
  - CEREBROVASCULAR ACCIDENT [None]
  - FEELING ABNORMAL [None]
  - HEADACHE [None]
  - MUSCULAR WEAKNESS [None]
  - VISUAL DISTURBANCE [None]
